FAERS Safety Report 5377312-0 (Version None)
Quarter: 2007Q3

REPORT INFORMATION
  Report Type: 
  Country: None (occurrence: None)
  Receive Date: 20070703
  Receipt Date: 20070622
  Transmission Date: 20080115
  Serious: Yes (Life-Threatening, Hospitalization, Other)
  Sender: FDA-Public Use
  Company Number: EG-MERCK-0706USA04404

PATIENT
  Age: 76 Year
  Sex: Female
  Weight: 60 kg

DRUGS (9)
  1. QUIBRON [Concomitant]
     Indication: CHEST DISCOMFORT
     Route: 048
     Dates: start: 20070619
  2. SLOW-K [Concomitant]
     Route: 048
     Dates: start: 20070619
  3. COMBIVENT [Concomitant]
     Indication: CHEST DISCOMFORT
     Dates: start: 20070619
  4. PRIMAXIN [Suspect]
     Indication: PULMONARY SARCOIDOSIS
     Route: 042
     Dates: start: 20070619, end: 20070620
  5. PRIMAXIN [Suspect]
     Indication: LOWER RESPIRATORY TRACT INFECTION
     Route: 042
     Dates: start: 20070619, end: 20070620
  6. PRILOSEC [Concomitant]
     Indication: GASTROOESOPHAGEAL REFLUX DISEASE
     Route: 042
     Dates: start: 20070619
  7. ENOXAPARIN SODIUM [Concomitant]
     Indication: THROMBOSIS PROPHYLAXIS
     Route: 058
     Dates: start: 20070619
  8. DUXIL [Concomitant]
     Indication: CEREBROVASCULAR DISORDER
     Route: 048
     Dates: start: 20070619
  9. [THERAPY UNSPECIFIED] [Concomitant]
     Indication: OXYGEN SATURATION DECREASED
     Route: 048
     Dates: start: 20070619

REACTIONS (3)
  - ALTERED STATE OF CONSCIOUSNESS [None]
  - CLONIC CONVULSION [None]
  - HALLUCINATION [None]
